FAERS Safety Report 4350535-5 (Version None)
Quarter: 2004Q2

REPORT INFORMATION
  Report Type: 
  Country: None (occurrence: None)
  Receive Date: 20040427
  Receipt Date: 20040421
  Transmission Date: 20050107
  Serious: Yes (Other)
  Sender: FDA-Public Use
  Company Number: 200417692BWH

PATIENT

DRUGS (1)
  1. NIMOTOP [Suspect]
     Indication: SUBARACHNOID HAEMORRHAGE
     Dates: start: 20040415

REACTIONS (1)
  - VENTRICULAR EXTRASYSTOLES [None]
